FAERS Safety Report 6850405-4 (Version None)
Quarter: 2010Q3

REPORT INFORMATION
  Report Type: 
  Country: None (occurrence: None)
  Receive Date: 20100716
  Receipt Date: 20080112
  Transmission Date: 20110219
  Serious: No
  Sender: FDA-Public Use
  Company Number: US-PFIZER INC-2007088282

PATIENT
  Sex: Male
  Weight: 136.08 kg

DRUGS (8)
  1. CHANTIX [Suspect]
     Indication: SMOKING CESSATION THERAPY
     Route: 048
     Dates: start: 20070725
  2. TOPAMAX [Suspect]
     Indication: WEIGHT DECREASED
     Dates: start: 20070919
  3. RISPERDAL [Concomitant]
     Indication: SCHIZOPHRENIA
  4. COGENTIN [Concomitant]
     Indication: SCHIZOPHRENIA
  5. COLACE [Concomitant]
  6. AVANDIA [Concomitant]
     Indication: TYPE 2 DIABETES MELLITUS
  7. INSULIN [Concomitant]
     Indication: TYPE 2 DIABETES MELLITUS
  8. SIMVASTATIN [Concomitant]
     Indication: HYPERLIPIDAEMIA

REACTIONS (2)
  - EYE PAIN [None]
  - MYOPIA [None]
